FAERS Safety Report 6698770-5 (Version None)
Quarter: 2010Q2

REPORT INFORMATION
  Report Type: 
  Country: None (occurrence: None)
  Receive Date: 20100427
  Receipt Date: 20100416
  Transmission Date: 20101027
  Serious: Yes (Hospitalization)
  Sender: FDA-Public Use
  Company Number: PHHY2010CH23963

PATIENT
  Sex: Female

DRUGS (1)
  1. ZOMETA [Suspect]
     Indication: HYPERCALCAEMIA
     Dosage: 4 MG/DAY ON 4 CONSECUTIVE DAYS
     Route: 042
     Dates: start: 20100401

REACTIONS (7)
  - DRUG ADMINISTRATION ERROR [None]
  - ELECTROLYTE DEPLETION [None]
  - GLYCOSURIA [None]
  - HYPOCALCAEMIA [None]
  - HYPOPHOSPHATAEMIA [None]
  - OVERDOSE [None]
  - RENAL TUBULAR DISORDER [None]
